FAERS Safety Report 19770568 (Version 3)
Quarter: 2021Q4

REPORT INFORMATION
  Report Type: Report from Study
  Country: PK (occurrence: PK)
  Receive Date: 20210831
  Receipt Date: 20211013
  Transmission Date: 20220303
  Serious: Yes (Hospitalization, Other)
  Sender: FDA-Public Use
  Company Number: NVSC2021PK194765

PATIENT
  Age: 19 Year
  Sex: Male

DRUGS (3)
  1. SECUKINUMAB [Suspect]
     Active Substance: SECUKINUMAB
     Indication: Ankylosing spondylitis
     Dosage: 150 MG, QMO
     Route: 058
     Dates: start: 20190911, end: 20210429
  2. SECUKINUMAB [Suspect]
     Active Substance: SECUKINUMAB
     Dosage: 150 MG, QW (FOR 4 WEEKS AND THEN ONCE MONTHLY)
     Route: 058
     Dates: start: 20210710
  3. SECUKINUMAB [Suspect]
     Active Substance: SECUKINUMAB
     Dosage: UNK
     Route: 058

REACTIONS (4)
  - Typhoid fever [Not Recovered/Not Resolved]
  - Infection [Unknown]
  - Immunodeficiency [Unknown]
  - Seizure [Unknown]

NARRATIVE: CASE EVENT DATE: 20210806
